FAERS Safety Report 21457715 (Version 1)
Quarter: 2022Q4

REPORT INFORMATION
  Report Type: Spontaneous
  Country: NL (occurrence: NL)
  Receive Date: 20221014
  Receipt Date: 20221014
  Transmission Date: 20230112
  Serious: Yes (Death, Life-Threatening, Hospitalization, Other)
  Sender: FDA-Public Use
  Company Number: NL-JUBILANT CADISTA PHARMACEUTICALS-2022JUB00346

PATIENT
  Age: 23 Year
  Sex: Male

DRUGS (11)
  1. OLANZAPINE [Suspect]
     Active Substance: OLANZAPINE
     Indication: Psychotic disorder
     Dosage: 20 MG, DAY 1- DAY 17
     Route: 048
  2. OLANZAPINE [Suspect]
     Active Substance: OLANZAPINE
     Dosage: 15 MG, DAY 21- DAY 23
     Route: 048
  3. OLANZAPINE [Suspect]
     Active Substance: OLANZAPINE
     Dosage: 25 MG
     Route: 048
  4. CLOZAPINE [Suspect]
     Active Substance: CLOZAPINE
     Indication: Psychotic disorder
     Dosage: 12.5 MG, 1X/DAY, DAY 1
     Route: 048
  5. CLOZAPINE [Suspect]
     Active Substance: CLOZAPINE
     Dosage: 25 MG, DAY 3
     Route: 048
  6. CLOZAPINE [Suspect]
     Active Substance: CLOZAPINE
     Dosage: 50 MG, 1X/DAY, DAY 6
     Route: 048
  7. CLOZAPINE [Suspect]
     Active Substance: CLOZAPINE
     Dosage: 75 MG, 1X/DAY, DAY 8
     Route: 048
  8. CLOZAPINE [Suspect]
     Active Substance: CLOZAPINE
     Dosage: 100 MG, 1X/DAY, DAY 10-DAY 14
     Route: 048
  9. CLOZAPINE [Suspect]
     Active Substance: CLOZAPINE
     Dosage: 125 MG, 1X/DAY, DAY 15
     Route: 048
  10. CLOZAPINE [Suspect]
     Active Substance: CLOZAPINE
     Dosage: 150 MG, 1X/DAY, DAY 17- DAY 21
     Route: 048
  11. CLOZAPINE [Suspect]
     Active Substance: CLOZAPINE
     Dosage: 250 MG, 1X/DAY, DAY 21- DAY 23
     Route: 048

REACTIONS (11)
  - Intestinal pseudo-obstruction [Fatal]
  - Heart sounds abnormal [Recovered/Resolved]
  - Multiple organ dysfunction syndrome [Fatal]
  - Acute kidney injury [Fatal]
  - Gastrointestinal hypomotility [Fatal]
  - Pulse absent [Recovered/Resolved]
  - Faecaloma [Not Recovered/Not Resolved]
  - Vasoplegia syndrome [Fatal]
  - Rhabdomyolysis [Fatal]
  - Hypovolaemia [Fatal]
  - Hepatic failure [Fatal]
